FAERS Safety Report 5048758-5 (Version None)
Quarter: 2006Q3

REPORT INFORMATION
  Report Type: 
  Country: None (occurrence: None)
  Receive Date: 20060705
  Receipt Date: 20060615
  Transmission Date: 20061208
  Serious: Yes (Death, Life-Threatening)
  Sender: FDA-Public Use
  Company Number: FR200606003406

PATIENT
  Age: 76 Year
  Sex: Male
  Weight: 80 kg

DRUGS (7)
  1. XIGRIS [Suspect]
     Indication: SEPTIC SHOCK
     Dosage: INTRAVENOUS
     Route: 042
     Dates: start: 20060410, end: 20060413
  2. LASIX [Concomitant]
  3. PLAVIX [Concomitant]
  4. AMLODIPINE BESYLATE [Concomitant]
  5. POTASSIUM CHLORIDE [Concomitant]
  6. CEFTAZIDIME PENTAHYDRATE [Concomitant]
  7. CIFLOX (CIPROFLOXACIN) [Concomitant]

REACTIONS (3)
  - GASTROINTESTINAL HAEMORRHAGE [None]
  - MENINGORRHAGIA [None]
  - PLATELET COUNT DECREASED [None]
